FAERS Safety Report 8308082-1 (Version None)
Quarter: 2012Q1

REPORT INFORMATION
  Report Type: 
  Country: None (occurrence: None)
  Receive Date: 20120327
  Receipt Date: 20091020
  Transmission Date: 20120608
  Serious: Yes (Hospitalization)
  Sender: FDA-Public Use
  Company Number: PHEH2009US14253

PATIENT
  Age: 82 Year
  Sex: Female

DRUGS (10)
  1. GLEEVEC [Suspect]
     Indication: CHRONIC MYELOID LEUKAEMIA
     Dosage: 400 MG, QD, ORAL
     Route: 048
     Dates: start: 20060101, end: 20090901
  2. ATENOLOL [Concomitant]
  3. LASIX [Concomitant]
  4. PROTONIX [Concomitant]
  5. ASPIRIN [Concomitant]
  6. PHENERGAN ^AVENTIS PHARMA^ (PROMETHAZINE HYDROCHLORIDE) [Concomitant]
  7. ZYLOPRIM [Concomitant]
  8. POTASSIUM CHLORIDE [Concomitant]
  9. PLAVIX [Concomitant]
  10. DIOVAN [Concomitant]

REACTIONS (1)
  - PLEURAL EFFUSION [None]
